FAERS Safety Report 5120895-6 (Version None)
Quarter: 2006Q4

REPORT INFORMATION
  Report Type: 
  Country: None (occurrence: None)
  Receive Date: 20061002
  Receipt Date: 20060915
  Transmission Date: 20070319
  Serious: Yes (Life-Threatening)
  Sender: FDA-Public Use
  Company Number: 2006SP002031

PATIENT
  Sex: Male

DRUGS (4)
  1. POSACONAZOLE [Suspect]
     Indication: ASPERGILLOSIS
     Dosage: 200 MG; QD; NGT
     Dates: start: 20060801
  2. LIPOSSOMAL ANPHOTERICINE B [Concomitant]
  3. VORICONAZOLE [Concomitant]
  4. CASPOPHUNGINE [Concomitant]

REACTIONS (2)
  - COMA [None]
  - MALNUTRITION [None]
